FAERS Safety Report 18992632 (Version 1)
Quarter: 2021Q1

REPORT INFORMATION
  Report Type: Spontaneous
  Country: CH (occurrence: CH)
  Receive Date: 20210310
  Receipt Date: 20210310
  Transmission Date: 20210420
  Serious: Yes (Life-Threatening, Hospitalization)
  Sender: FDA-Public Use
  Company Number: CH-BAYER-2021-094861

PATIENT
  Age: 66 Year
  Sex: Male
  Weight: 74 kg

DRUGS (13)
  1. RAPISCAN [Suspect]
     Active Substance: REGADENOSON
     Indication: MAGNETIC RESONANCE IMAGING HEART
     Dosage: 400 ?G, UNK
     Route: 040
     Dates: start: 20210202, end: 20210202
  2. VALTREX [Concomitant]
     Active Substance: VALACYCLOVIR HYDROCHLORIDE
     Dosage: 500 MG, UNK
     Route: 048
  3. REMERON [Concomitant]
     Active Substance: MIRTAZAPINE
     Dosage: 15 MG, UNK
     Route: 048
  4. ELIQUIS [Concomitant]
     Active Substance: APIXABAN
     Dosage: 2.5 MG, UNK
     Route: 048
  5. REVLIMID [Concomitant]
     Active Substance: LENALIDOMIDE
     Dosage: 10 MG, UNK
     Route: 048
  6. DIFLUCAN [Concomitant]
     Active Substance: FLUCONAZOLE
     Dosage: 400 MG, UNK
     Route: 048
  7. METOPROLOL AXAPHARM [Concomitant]
     Dosage: 50 MG, UNK
     Route: 048
  8. PANTOZOLE [Concomitant]
     Active Substance: PANTOPRAZOLE SODIUM
     Dosage: 40 MG, UNK
     Route: 048
  9. GADOVIST [Suspect]
     Active Substance: GADOBUTROL
     Dosage: SINGLE DOSE IV ON 02?FEB?2021 AS A PART CARDIO MRI EXAMINATION
     Route: 040
     Dates: start: 20210202
  10. WELLVONE [Concomitant]
     Active Substance: ATOVAQUONE
     Dosage: 1500 MG, UNK
     Route: 048
  11. THEOPHYLLINUM ETHYLENDIAMINUM [Suspect]
     Active Substance: AMINOPHYLLINE
     Indication: MAGNETIC RESONANCE IMAGING HEART
     Dosage: 240 MG, UNK
     Route: 040
  12. TOREM [TORASEMIDE] [Concomitant]
     Active Substance: TORSEMIDE
     Dosage: 5 MG, UNK
     Route: 048
  13. ROSUVASTATIN HEMICALCIUM [Concomitant]
     Dosage: 10 MG, UNK
     Route: 048

REACTIONS (1)
  - Drug reaction with eosinophilia and systemic symptoms [Recovering/Resolving]

NARRATIVE: CASE EVENT DATE: 20210202
